FAERS Safety Report 16035680 (Version 1)
Quarter: 2019Q1

REPORT INFORMATION
  Report Type: Spontaneous
  Country: US (occurrence: US)
  Receive Date: 20190205
  Receipt Date: 20190205
  Transmission Date: 20190418
  Serious: Yes (Other)
  Sender: FDA-Public Use
  Company Number: None

PATIENT
  Age: 71 Year
  Sex: Female

DRUGS (13)
  1. TADALAFIL. [Concomitant]
     Active Substance: TADALAFIL
  2. FUROSEMIDE. [Concomitant]
     Active Substance: FUROSEMIDE
  3. AMLODIPINE [Concomitant]
     Active Substance: AMLODIPINE BESYLATE
  4. MVI [Concomitant]
     Active Substance: VITAMINS
  5. VNETOLIN HPA [Concomitant]
  6. PRADAXA [Concomitant]
     Active Substance: DABIGATRAN ETEXILATE MESYLATE
  7. ALLOPURINOL. [Concomitant]
     Active Substance: ALLOPURINOL
  8. K-TAB [Concomitant]
     Active Substance: POTASSIUM CHLORIDE
  9. LETAIRIS [Suspect]
     Active Substance: AMBRISENTAN
     Indication: PULMONARY ARTERIAL HYPERTENSION
     Route: 048
     Dates: start: 201607
  10. FLONASE [Concomitant]
     Active Substance: FLUTICASONE PROPIONATE
  11. FERROUS SULFATE. [Concomitant]
     Active Substance: FERROUS SULFATE
  12. METOPROLOL. [Concomitant]
     Active Substance: METOPROLOL
  13. ATORVASTATIN [Concomitant]
     Active Substance: ATORVASTATIN

REACTIONS (4)
  - Wheezing [None]
  - Pyrexia [None]
  - Productive cough [None]
  - Pulmonary congestion [None]

NARRATIVE: CASE EVENT DATE: 20190110
